FAERS Safety Report 9017477 (Version 1)
Quarter: 2013Q1

REPORT INFORMATION
  Report Type: Report from Study
  Country: DE (occurrence: DE)
  Receive Date: 20130117
  Receipt Date: 20130117
  Transmission Date: 20140127
  Serious: Yes (Hospitalization)
  Sender: FDA-Public Use
  Company Number: DE-BAXTER-2013BAX001893

PATIENT
  Age: 18 Year
  Sex: Male

DRUGS (14)
  1. ENDOXAN 1G [Suspect]
     Indication: HODGKIN^S DISEASE
     Route: 065
     Dates: start: 20110224
  2. ENDOXAN 1G [Suspect]
     Route: 065
     Dates: start: 20110316
  3. ETOPOSID [Suspect]
     Indication: HODGKIN^S DISEASE
     Route: 065
     Dates: start: 20110224
  4. RITUXIMAB [Suspect]
     Indication: HODGKIN^S DISEASE
     Route: 042
     Dates: start: 20110316
  5. DOXORUBICIN [Suspect]
     Indication: HODGKIN^S DISEASE
     Route: 042
     Dates: start: 20110224
  6. BLEOMYCIN [Suspect]
     Indication: HODGKIN^S DISEASE
     Route: 042
     Dates: start: 20110224
  7. BLEOMYCIN [Suspect]
     Route: 042
     Dates: start: 20110316
  8. FILGRASTIM [Suspect]
     Indication: HODGKIN^S DISEASE
     Route: 065
     Dates: start: 20110303, end: 20110309
  9. PROCARBAZINE [Suspect]
     Indication: HODGKIN^S DISEASE
     Route: 065
     Dates: start: 20110224
  10. PROCARBAZINE [Suspect]
     Route: 065
     Dates: start: 20110316
  11. VINCRISTINE [Suspect]
     Indication: HODGKIN^S DISEASE
     Route: 065
     Dates: start: 20110224
  12. VINCRISTINE [Suspect]
     Route: 065
     Dates: start: 20110316
  13. PREDNISONE [Suspect]
     Indication: HODGKIN^S DISEASE
     Route: 042
     Dates: start: 20110224
  14. PREDNISONE [Suspect]
     Route: 042
     Dates: start: 20110316

REACTIONS (7)
  - Device related infection [Recovered/Resolved]
  - C-reactive protein increased [Recovered/Resolved]
  - Pyrexia [Recovered/Resolved]
  - Arthralgia [Recovered/Resolved]
  - Bone pain [Recovered/Resolved]
  - Sepsis [Recovered/Resolved]
  - C-reactive protein decreased [Recovered/Resolved]
